FAERS Safety Report 19575526 (Version 6)
Quarter: 2025Q2

REPORT INFORMATION
  Report Type: Spontaneous
  Country: DE (occurrence: DE)
  Receive Date: 20210719
  Receipt Date: 20250625
  Transmission Date: 20250716
  Serious: Yes (Hospitalization, Disabling, Other)
  Sender: UCB
  Company Number: None

PATIENT
  Age: 49 Year
  Sex: Male
  Weight: 85 kg

DRUGS (32)
  1. KEPPRA [Suspect]
     Active Substance: LEVETIRACETAM
     Indication: Epilepsy
     Dates: start: 20160727, end: 20170710
  2. KIOVIG [Suspect]
     Active Substance: HUMAN IMMUNOGLOBULIN G
     Indication: Immunoglobulins decreased
  3. URSODIOL [Suspect]
     Active Substance: URSODIOL
     Indication: Drug-induced liver injury
     Dates: start: 201602, end: 201603
  4. PRIVIGEN [Suspect]
     Active Substance: HUMAN IMMUNOGLOBULIN G
     Indication: Chronic lymphocytic leukaemia
     Dates: start: 20160323
  5. TOPIRAMATE [Suspect]
     Active Substance: TOPIRAMATE
     Indication: Epilepsy
     Dates: end: 20200221
  6. FLUDARABINE [Suspect]
     Active Substance: FLUDARABINE PHOSPHATE
     Indication: Chronic lymphocytic leukaemia
     Dates: start: 20141118, end: 20150407
  7. FLUDARABINE [Suspect]
     Active Substance: FLUDARABINE PHOSPHATE
     Route: 042
     Dates: start: 20141118
  8. FLUDARABINE [Suspect]
     Active Substance: FLUDARABINE PHOSPHATE
     Route: 042
     Dates: start: 20141119
  9. FLUDARABINE [Suspect]
     Active Substance: FLUDARABINE PHOSPHATE
     Route: 042
     Dates: start: 20141216
  10. FLUDARABINE [Suspect]
     Active Substance: FLUDARABINE PHOSPHATE
     Route: 042
     Dates: start: 20150113
  11. FLUDARABINE [Suspect]
     Active Substance: FLUDARABINE PHOSPHATE
     Route: 042
     Dates: start: 20150114
  12. FLUDARABINE [Suspect]
     Active Substance: FLUDARABINE PHOSPHATE
     Route: 042
     Dates: start: 20150115
  13. FLUDARABINE [Suspect]
     Active Substance: FLUDARABINE PHOSPHATE
     Route: 042
     Dates: start: 20150310
  14. FLUDARABINE [Suspect]
     Active Substance: FLUDARABINE PHOSPHATE
     Route: 042
     Dates: start: 20150312
  15. CYCLOPHOSPHAMIDE [Suspect]
     Active Substance: CYCLOPHOSPHAMIDE
     Indication: Chronic lymphocytic leukaemia
     Dates: start: 20141118, end: 20150407
  16. CYCLOPHOSPHAMIDE [Suspect]
     Active Substance: CYCLOPHOSPHAMIDE
     Route: 042
     Dates: start: 20141118
  17. CYCLOPHOSPHAMIDE [Suspect]
     Active Substance: CYCLOPHOSPHAMIDE
     Route: 042
     Dates: start: 20141119
  18. CYCLOPHOSPHAMIDE [Suspect]
     Active Substance: CYCLOPHOSPHAMIDE
     Route: 042
     Dates: start: 20141216
  19. OBINUTUZUMAB [Suspect]
     Active Substance: OBINUTUZUMAB
     Indication: Chronic lymphocytic leukaemia
     Route: 042
     Dates: start: 20141118, end: 20150407
  20. OBINUTUZUMAB [Suspect]
     Active Substance: OBINUTUZUMAB
     Route: 042
     Dates: start: 20141216
  21. OBINUTUZUMAB [Suspect]
     Active Substance: OBINUTUZUMAB
     Route: 042
     Dates: start: 20150113
  22. OBINUTUZUMAB [Suspect]
     Active Substance: OBINUTUZUMAB
     Route: 042
     Dates: start: 201502
  23. OBINUTUZUMAB [Suspect]
     Active Substance: OBINUTUZUMAB
     Route: 042
     Dates: start: 20150310
  24. OBINUTUZUMAB [Suspect]
     Active Substance: OBINUTUZUMAB
     Route: 042
     Dates: start: 20150407
  25. CHOLECALCIFEROL [Concomitant]
     Active Substance: CHOLECALCIFEROL
     Indication: Product used for unknown indication
     Dosage: 20000 INTERNATIONAL UNIT, ONCE DAILY (QD)
  26. CIPROFLOXACIN [Concomitant]
     Active Substance: CIPROFLOXACIN
     Indication: Product used for unknown indication
  27. AMPHOTERICIN B [Concomitant]
     Active Substance: AMPHOTERICIN B
     Indication: Product used for unknown indication
     Dosage: 1 DOSAGE FORM, 4X/DAY (QID)
  28. SOLU DACORTIN H [Concomitant]
     Indication: Product used for unknown indication
  29. JONOSTERIL [CALCIUM ACETATE;MAGNESIUM ACETATE TETRAHYDRATE;POTASSIUM A [Concomitant]
     Indication: Product used for unknown indication
  30. PANTOPRAZOLE [Concomitant]
     Active Substance: PANTOPRAZOLE
     Indication: Product used for unknown indication
  31. ALLOPURINOL [Concomitant]
     Active Substance: ALLOPURINOL
     Indication: Product used for unknown indication
     Dosage: 300 MILLIGRAM, ONCE DAILY (QD)
  32. LEUCOVORIN CALCIUM [Concomitant]
     Active Substance: LEUCOVORIN CALCIUM
     Indication: Product used for unknown indication

REACTIONS (73)
  - Cytopenia [Unknown]
  - Bacterial disease carrier [Unknown]
  - Basal cell carcinoma [Not Recovered/Not Resolved]
  - Varicella zoster virus infection [Recovered/Resolved]
  - Myelosuppression [Unknown]
  - Pyrexia [Recovered/Resolved]
  - Encephalitis [Unknown]
  - Epilepsy [Not Recovered/Not Resolved]
  - Pain [Unknown]
  - Abdominal pain [Unknown]
  - Blood pressure increased [Recovered/Resolved]
  - Weight decreased [Unknown]
  - Hypersensitivity [Recovered/Resolved]
  - Diarrhoea [Recovered/Resolved]
  - Gallbladder polyp [Unknown]
  - Cough [Recovered/Resolved]
  - Rectal tenesmus [Unknown]
  - Fungal infection [Unknown]
  - Blepharospasm [Recovered/Resolved]
  - Hepatic enzyme increased [Not Recovered/Not Resolved]
  - Abdominal pain upper [Unknown]
  - Folliculitis [Unknown]
  - Impulse-control disorder [Recovered/Resolved]
  - Dizziness [Unknown]
  - Dermatitis atopic [Unknown]
  - Erythema [Unknown]
  - Nausea [Unknown]
  - Urge incontinence [Not Recovered/Not Resolved]
  - Dehydration [Recovered/Resolved]
  - Rhinorrhoea [Unknown]
  - Decreased appetite [Unknown]
  - Oedema peripheral [Unknown]
  - Benign prostatic hyperplasia [Unknown]
  - Organic brain syndrome [Unknown]
  - Back pain [Unknown]
  - Skin cancer [Unknown]
  - Pruritus [Unknown]
  - Eructation [Unknown]
  - Infection [Unknown]
  - Vitamin D deficiency [Unknown]
  - Bladder hypertrophy [Unknown]
  - Initial insomnia [Unknown]
  - Eye irritation [Unknown]
  - Muscle twitching [Unknown]
  - Dry mouth [Unknown]
  - Pollakiuria [Not Recovered/Not Resolved]
  - Osteoarthritis [Not Recovered/Not Resolved]
  - Depression [Unknown]
  - Taste disorder [Unknown]
  - Peroneal nerve palsy [Unknown]
  - Adjustment disorder [Unknown]
  - Large intestinal stenosis [Recovered/Resolved]
  - Ill-defined disorder [Unknown]
  - Drug-induced liver injury [Not Recovered/Not Resolved]
  - Retinitis viral [Recovered/Resolved]
  - Blindness unilateral [Not Recovered/Not Resolved]
  - Hemiparesis [Recovering/Resolving]
  - Toxoplasmosis [Recovered/Resolved with Sequelae]
  - Pneumonia [Unknown]
  - Febrile neutropenia [Unknown]
  - Respiratory failure [Unknown]
  - Necrotising retinitis [Not Recovered/Not Resolved]
  - Drug hypersensitivity [Unknown]
  - Pruritus allergic [Unknown]
  - Colitis [Recovered/Resolved]
  - Leukopenia [Unknown]
  - Neutropenia [Unknown]
  - Liver function test increased [Not Recovered/Not Resolved]
  - Mucosal disorder [Unknown]
  - Syncope [Unknown]
  - Cataract subcapsular [Unknown]
  - Central nervous system lesion [Not Recovered/Not Resolved]
  - Nephropathy toxic [Unknown]

NARRATIVE: CASE EVENT DATE: 20150301
